FAERS Safety Report 5017987-9 (Version None)
Quarter: 2006Q2

REPORT INFORMATION
  Report Type: 
  Country: None (occurrence: None)
  Receive Date: 20060605
  Receipt Date: 20060524
  Transmission Date: 20061013
  Serious: Yes (Death, Hospitalization)
  Sender: FDA-Public Use
  Company Number: BE-GLAXOSMITHKLINE-B0426149A

PATIENT
  Age: 76 Year
  Sex: Female
  Weight: 50 kg

DRUGS (4)
  1. CLAMOXYL [Suspect]
     Dosage: 1G TWICE PER DAY
     Route: 048
     Dates: start: 20060406, end: 20060412
  2. HELICLAR [Concomitant]
     Dosage: 500MG TWICE PER DAY
     Route: 048
     Dates: start: 20060406, end: 20060412
  3. NEXIUM [Concomitant]
     Dosage: 40MG PER DAY
     Route: 048
     Dates: start: 20060406, end: 20060418
  4. DOCETAXEL [Concomitant]
     Indication: BREAST CANCER
     Dosage: 40MGM2 SIX TIMES PER DAY
     Route: 042
     Dates: start: 20060308, end: 20060419

REACTIONS (6)
  - BLOOD AMYLASE INCREASED [None]
  - LIPASE INCREASED [None]
  - MUCOSAL INFLAMMATION [None]
  - NEUTROPENIA [None]
  - STEVENS-JOHNSON SYNDROME [None]
  - STOMATITIS [None]
